FAERS Safety Report 8305871-4 (Version None)
Quarter: 2012Q2

REPORT INFORMATION
  Report Type: 
  Country: None (occurrence: None)
  Receive Date: 20120418
  Receipt Date: 20120404
  Transmission Date: 20120825
  Serious: Yes (Other)
  Sender: FDA-Public Use
  Company Number: INT_00066_2012

PATIENT
  Age: 3 Year
  Sex: Male

DRUGS (4)
  1. MEROPENEM [Suspect]
     Indication: SHUNT INFECTION
     Dosage: (UNKNOWN DF INTRAVENOUS (NOT OTHERWISE SPECIFIED))
     Route: 042
  2. MEROPENEM [Suspect]
     Indication: BRAIN ABSCESS
     Dosage: (UNKNOWN DF INTRAVENOUS (NOT OTHERWISE SPECIFIED))
     Route: 042
  3. VANCOMYCIN [Suspect]
     Indication: BRAIN ABSCESS
     Dosage: (UNKNOWN DF INTRAVENOUS (NOT OTHERWISE SPECIFIED))
     Route: 042
  4. VANCOMYCIN [Suspect]
     Indication: SHUNT INFECTION
     Dosage: (UNKNOWN DF INTRAVENOUS (NOT OTHERWISE SPECIFIED))
     Route: 042

REACTIONS (11)
  - PYREXIA [None]
  - EOSINOPHILIA [None]
  - JOINT SWELLING [None]
  - RASH MACULO-PAPULAR [None]
  - RASH ERYTHEMATOUS [None]
  - BLOOD CREATININE INCREASED [None]
  - C-REACTIVE PROTEIN INCREASED [None]
  - COAGULOPATHY [None]
  - HAEMATURIA [None]
  - SERUM SICKNESS-LIKE REACTION [None]
  - PANCYTOPENIA [None]
